FAERS Safety Report 25228338 (Version 2)
Quarter: 2025Q2

REPORT INFORMATION
  Report Type: Report from Study
  Country: JP (occurrence: JP)
  Receive Date: 20250423
  Receipt Date: 20250514
  Transmission Date: 20250716
  Serious: Yes (Hospitalization, Other)
  Sender: TAKEDA
  Company Number: JP-TAKEDA-2025TJP003967

PATIENT
  Age: 60 Year
  Sex: Male
  Weight: 62.5 kg

DRUGS (20)
  1. MARIBAVIR [Suspect]
     Active Substance: MARIBAVIR
     Indication: Cytomegalovirus infection
     Dates: start: 20241023, end: 20241119
  2. REZUROCK [Concomitant]
     Active Substance: BELUMOSUDIL
  3. MIRTAZAPINE [Concomitant]
     Active Substance: MIRTAZAPINE
  4. SAMSCA [Concomitant]
     Active Substance: TOLVAPTAN
  5. SPIRONOLACTONE [Concomitant]
     Active Substance: SPIRONOLACTONE
  6. TORSEMIDE [Concomitant]
     Active Substance: TORSEMIDE
  7. ACYCLOVIR [Concomitant]
     Active Substance: ACYCLOVIR
  8. SULFAMETHOXAZOLE\TRIMETHOPRIM [Concomitant]
     Active Substance: SULFAMETHOXAZOLE\TRIMETHOPRIM
  9. CRESEMBA [Concomitant]
     Active Substance: ISAVUCONAZONIUM SULFATE
  10. CANCIDAS [Concomitant]
     Active Substance: CASPOFUNGIN ACETATE
  11. CRESEMBA [Concomitant]
     Active Substance: ISAVUCONAZONIUM SULFATE
  12. MEROPENEM [Concomitant]
     Active Substance: MEROPENEM
  13. TEICOPLANIN [Concomitant]
     Active Substance: TEICOPLANIN
  14. ICOSAPENT ETHYL [Concomitant]
     Active Substance: ICOSAPENT ETHYL
  15. FLORINEF ACETATE [Concomitant]
     Active Substance: FLUDROCORTISONE ACETATE
  16. CALCIUM POLYCARBOPHIL [Concomitant]
     Active Substance: CALCIUM POLYCARBOPHIL
  17. MIYA-BM [Concomitant]
     Active Substance: CLOSTRIDIUM BUTYRICUM SPORES STRAIN M-55
  18. BEZAFIBRATE [Concomitant]
     Active Substance: BEZAFIBRATE
  19. HUMALOG [Concomitant]
     Active Substance: INSULIN LISPRO
  20. HUMULIN R [Concomitant]
     Active Substance: INSULIN HUMAN

REACTIONS (4)
  - Influenza [Recovered/Resolved]
  - Enteritis infectious [Recovered/Resolved]
  - Streptococcal infection [Recovered/Resolved]
  - Pyrexia [Recovered/Resolved]

NARRATIVE: CASE EVENT DATE: 20241231
